FAERS Safety Report 9652194 (Version 1)
Quarter: 2013Q4

REPORT INFORMATION
  Report Type: Spontaneous
  Country: US (occurrence: None)
  Receive Date: 20131025
  Receipt Date: 20131025
  Transmission Date: 20140711
  Serious: Yes (Death, Hospitalization, Other)
  Sender: FDA-Public Use
  Company Number: 2013-1677

PATIENT
  Age: 78 Year
  Sex: Male

DRUGS (1)
  1. KYPROLIS (CARFILZOMIB) (INJECTION FOR INFUSION) (CARFILZOMIB) [Suspect]
     Indication: PLASMA CELL MYELOMA
     Dates: start: 201308, end: 20131004

REACTIONS (7)
  - Neoplasm malignant [None]
  - Condition aggravated [None]
  - Sepsis [None]
  - Pneumonia [None]
  - Myocardial infarction [None]
  - Hepatic enzyme increased [None]
  - Renal failure [None]
